FAERS Safety Report 21188016 (Version 2)
Quarter: 2022Q3

REPORT INFORMATION
  Report Type: Report from Study
  Country: US (occurrence: US)
  Receive Date: 20220809
  Receipt Date: 20220902
  Transmission Date: 20221027
  Serious: Yes (Death, Hospitalization, Other)
  Sender: FDA-Public Use
  Company Number: US-ACADIA PHARMACEUTICALS INC.-ACA-2022-PIM-002563

PATIENT
  Sex: Male

DRUGS (14)
  1. NUPLAZID [Suspect]
     Active Substance: PIMAVANSERIN TARTRATE
     Indication: Parkinson^s disease
     Dosage: 34 MILLIGRAM, QD
     Route: 048
     Dates: start: 20210921
  2. NUPLAZID [Suspect]
     Active Substance: PIMAVANSERIN TARTRATE
     Dosage: 34 MILLIGRAM, QD
     Route: 048
     Dates: start: 20211006, end: 20220704
  3. MEMANTINE [Concomitant]
     Active Substance: MEMANTINE
  4. CLOPIDOGREL [Concomitant]
     Active Substance: CLOPIDOGREL BISULFATE
  5. SERTRALINE [Concomitant]
     Active Substance: SERTRALINE HYDROCHLORIDE
  6. RASAGILINE [Concomitant]
     Active Substance: RASAGILINE
  7. FOLIC ACID [Concomitant]
     Active Substance: FOLIC ACID
  8. MUPIROCIN [Concomitant]
     Active Substance: MUPIROCIN
     Dosage: 2%
  9. ATORVASTATIN [Concomitant]
     Active Substance: ATORVASTATIN
  10. LORATADINE [Concomitant]
     Active Substance: LORATADINE
  11. FLUTICASONE [Concomitant]
     Active Substance: FLUTICASONE
  12. QUETIAPINE [Concomitant]
     Active Substance: QUETIAPINE
  13. ISOSORBIDE MONONITRATE [Concomitant]
     Active Substance: ISOSORBIDE MONONITRATE
  14. METOPROLOL [Concomitant]
     Active Substance: METOPROLOL

REACTIONS (2)
  - Dementia [Recovered/Resolved]
  - Death [Recovered/Resolved]
